FAERS Safety Report 9263875 (Version 2)
Quarter: 2013Q2

REPORT INFORMATION
  Report Type: Spontaneous
  Country: DE (occurrence: DE)
  Receive Date: 20130430
  Receipt Date: 20130430
  Transmission Date: 20140414
  Serious: Yes (Life-Threatening, Hospitalization)
  Sender: FDA-Public Use
  Company Number: DE-TEVA-248029ISR

PATIENT
  Age: 71 Year
  Sex: Female

DRUGS (2)
  1. METFORMIN [Suspect]
     Indication: TYPE 2 DIABETES MELLITUS
     Route: 048
     Dates: start: 20100607, end: 20100613
  2. LIRAGLUTIDE (VICTOZA) [Suspect]
     Indication: TYPE 2 DIABETES MELLITUS
     Dosage: .6 MILLIGRAM DAILY;
     Route: 058
     Dates: start: 20100607, end: 20100613

REACTIONS (5)
  - Hyperkalaemia [Not Recovered/Not Resolved]
  - Hypothermia [Not Recovered/Not Resolved]
  - Lactic acidosis [Not Recovered/Not Resolved]
  - Renal failure acute [Not Recovered/Not Resolved]
  - Shock [Not Recovered/Not Resolved]
